FAERS Safety Report 9702021 (Version 2)
Quarter: 2013Q4

REPORT INFORMATION
  Report Type: Spontaneous
  Country: US (occurrence: US)
  Receive Date: 20131121
  Receipt Date: 20131213
  Transmission Date: 20140711
  Serious: No
  Sender: FDA-Public Use
  Company Number: US-009507513-1311USA008649

PATIENT
  Age: 75 Year
  Sex: Female
  Weight: 72.11 kg

DRUGS (5)
  1. OXYTROL FOR WOMEN [Suspect]
     Indication: STRESS URINARY INCONTINENCE
     Dosage: 1 DF, ONCE
     Route: 062
     Dates: start: 201310
  2. OXYTROL FOR WOMEN [Suspect]
     Indication: URGE INCONTINENCE
  3. SYNTHROID [Concomitant]
     Indication: THYROID DISORDER
     Dosage: UNK, UNKNOWN
  4. PRAVASTATIN SODIUM [Concomitant]
     Indication: BLOOD CHOLESTEROL INCREASED
     Dosage: UNK, UNKNOWN
  5. OMEPRAZOLE [Concomitant]
     Indication: GASTRIC DISORDER
     Dosage: UNK, UNKNOWN

REACTIONS (6)
  - Application site burn [Recovered/Resolved]
  - Blister [Recovered/Resolved]
  - Skin exfoliation [Recovered/Resolved]
  - Skin discolouration [Recovered/Resolved]
  - Adverse reaction [Recovered/Resolved]
  - Pruritus [Recovered/Resolved]
